FAERS Safety Report 24602615 (Version 1)
Quarter: 2024Q4

REPORT INFORMATION
  Report Type: Spontaneous
  Country: AU (occurrence: AU)
  Receive Date: 20241111
  Receipt Date: 20241111
  Transmission Date: 20250114
  Serious: Yes (Hospitalization, Disabling)
  Sender: ACCORD
  Company Number: AU-MLMSERVICE-20241023-PI234676-00270-2

PATIENT
  Age: 6 Decade
  Sex: Female

DRUGS (4)
  1. HYDROXYCHLOROQUINE [Suspect]
     Active Substance: HYDROXYCHLOROQUINE
     Indication: Immunosuppressant drug therapy
  2. MYCOPHENOLIC ACID [Suspect]
     Active Substance: MYCOPHENOLIC ACID
     Indication: Immunosuppressant drug therapy
     Dosage: MYCOPHENOLATE 500 MG TWO TIMES PER DAY
  3. TACROLIMUS [Suspect]
     Active Substance: TACROLIMUS
     Indication: Immunosuppressant drug therapy
     Dosage: TACROLIMUS 1 MG TWO TIMES PER DAY
  4. PREDNISOLONE [Suspect]
     Active Substance: PREDNISOLONE
     Indication: Immunosuppressant drug therapy

REACTIONS (2)
  - Cerebral toxoplasmosis [Recovering/Resolving]
  - Disseminated toxoplasmosis [Recovering/Resolving]
